FAERS Safety Report 8548470-1 (Version None)
Quarter: 2012Q3

REPORT INFORMATION
  Report Type: 
  Country: None (occurrence: None)
  Receive Date: 20120717
  Receipt Date: 20120706
  Transmission Date: 20120928
  Serious: Yes (Disabling)
  Sender: FDA-Public Use
  Company Number: GER/UKI/12/0024924

PATIENT
  Age: 53 Year
  Sex: Male
  Weight: 80 kg

DRUGS (2)
  1. CLOPIDOGREL [Suspect]
     Indication: TRANSIENT ISCHAEMIC ATTACK
     Dosage: 75 MG, ORAL
     Route: 048
     Dates: end: 20120529
  2. AMLODIPINE [Concomitant]

REACTIONS (2)
  - DYSPNOEA EXERTIONAL [None]
  - LETHARGY [None]
